FAERS Safety Report 25283021 (Version 2)
Quarter: 2025Q2

REPORT INFORMATION
  Report Type: Spontaneous
  Country: CA (occurrence: CA)
  Receive Date: 20250508
  Receipt Date: 20250626
  Transmission Date: 20250716
  Serious: No
  Sender: PFIZER
  Company Number: CA-PFIZER INC-202500041360

PATIENT
  Age: 74 Year
  Sex: Female

DRUGS (3)
  1. ABRILADA [Suspect]
     Active Substance: ADALIMUMAB-AFZB
  2. ABRILADA [Suspect]
     Active Substance: ADALIMUMAB-AFZB
     Dates: start: 202502
  3. ABRILADA [Suspect]
     Active Substance: ADALIMUMAB-AFZB
     Dates: start: 2025

REACTIONS (4)
  - Injection site bruising [Unknown]
  - Device delivery system issue [Unknown]
  - Device mechanical issue [Unknown]
  - Drug dose omission by device [Unknown]

NARRATIVE: CASE EVENT DATE: 20250219
